FAERS Safety Report 15781231 (Version 1)
Quarter: 2019Q1

REPORT INFORMATION
  Report Type: Spontaneous
  Country: US (occurrence: US)
  Receive Date: 20190102
  Receipt Date: 20190102
  Transmission Date: 20190417
  Serious: No
  Sender: FDA-Public Use
  Company Number: US-SA-2018SA397679

PATIENT
  Age: 68 Year
  Sex: Female
  Weight: 63.49 kg

DRUGS (3)
  1. ZETIA [Concomitant]
     Active Substance: EZETIMIBE
  2. WELCHOL [Suspect]
     Active Substance: COLESEVELAM HYDROCHLORIDE
     Indication: BLOOD CHOLESTEROL INCREASED
     Dosage: 625 UNK, QD
     Route: 048
     Dates: start: 2011, end: 2018
  3. WELCHOL [Suspect]
     Active Substance: COLESEVELAM HYDROCHLORIDE
     Indication: BLOOD CHOLESTEROL INCREASED
     Dosage: 625 MG, QD, 6 TABLETS
     Route: 048
     Dates: start: 2018, end: 2018

REACTIONS (1)
  - Abdominal pain upper [Unknown]

NARRATIVE: CASE EVENT DATE: 2018
